FAERS Safety Report 10245156 (Version 3)
Quarter: 2015Q1

REPORT INFORMATION
  Report Type: Spontaneous
  Country: US (occurrence: US)
  Receive Date: 20140618
  Receipt Date: 20150204
  Transmission Date: 20150720
  Serious: Yes (Hospitalization, Disabling)
  Sender: FDA-Public Use
  Company Number: US-009507513-1406USA007814

PATIENT
  Sex: Male
  Weight: 68.93 kg

DRUGS (1)
  1. PROPECIA [Suspect]
     Active Substance: FINASTERIDE
     Indication: ALOPECIA
     Dosage: 1 MG, QD
     Route: 048
     Dates: start: 20050508, end: 20050522

REACTIONS (16)
  - Anxiety [Not Recovered/Not Resolved]
  - Testicular cyst [Unknown]
  - Hydrocele [Unknown]
  - Allodynia [Unknown]
  - Varicocele [Unknown]
  - Libido decreased [Not Recovered/Not Resolved]
  - Depression [Not Recovered/Not Resolved]
  - Testicular pain [Not Recovered/Not Resolved]
  - Cognitive disorder [Not Recovered/Not Resolved]
  - Ejaculation failure [Not Recovered/Not Resolved]
  - Disturbance in attention [Unknown]
  - Feeling abnormal [Not Recovered/Not Resolved]
  - Ejaculation disorder [Not Recovered/Not Resolved]
  - Insomnia [Unknown]
  - Erectile dysfunction [Not Recovered/Not Resolved]
  - Sexual dysfunction [Not Recovered/Not Resolved]

NARRATIVE: CASE EVENT DATE: 20050523
